FAERS Safety Report 5084248-1 (Version None)
Quarter: 2006Q3

REPORT INFORMATION
  Report Type: 
  Country: None (occurrence: None)
  Receive Date: 20060821
  Receipt Date: 20060502
  Transmission Date: 20061208
  Serious: No
  Sender: FDA-Public Use
  Company Number: US-BRISTOL-MYERS SQUIBB COMPANY-13364005

PATIENT
  Age: 76 Year
  Sex: Female
  Weight: 84 kg

DRUGS (8)
  1. TEQUIN [Suspect]
     Indication: COUGH
     Dates: start: 20060429, end: 20060501
  2. QVAR 40 [Concomitant]
     Dates: start: 20051101
  3. SINGULAIR [Concomitant]
     Dates: start: 20051101
  4. ALBUTEROL [Concomitant]
     Dates: start: 19860101
  5. CAPTOPRIL [Concomitant]
     Dates: start: 19910101
  6. VALIUM [Concomitant]
  7. PREVACID [Concomitant]
     Dates: start: 19960101
  8. LIPITOR [Concomitant]
     Dates: start: 20040101

REACTIONS (1)
  - BLOOD GLUCOSE INCREASED [None]
